FAERS Safety Report 15284470 (Version 1)
Quarter: 2018Q3

REPORT INFORMATION
  Report Type: Spontaneous
  Country: SK (occurrence: SK)
  Receive Date: 20180816
  Receipt Date: 20180816
  Transmission Date: 20181010
  Serious: Yes (Other)
  Sender: FDA-Public Use
  Company Number: PHHY2018SK070846

PATIENT
  Age: 58 Year
  Sex: Female

DRUGS (5)
  1. ZODAC [Concomitant]
     Active Substance: CETIRIZINE HYDROCHLORIDE
     Indication: PRODUCT USED FOR UNKNOWN INDICATION
     Dosage: 2 DF, UNK
     Route: 065
  2. ATORVASTATIN [Suspect]
     Active Substance: ATORVASTATIN
     Indication: BLOOD CHOLESTEROL INCREASED
     Route: 065
  3. NEUROL [Concomitant]
     Indication: PRODUCT USED FOR UNKNOWN INDICATION
     Dosage: 2 DF, BID
     Route: 065
  4. ASCORUTIN [Concomitant]
     Active Substance: ASCORBIC ACID\RUTIN
     Indication: CONTUSION
     Route: 065
  5. FLAVOBION [Concomitant]
     Indication: LIVER FUNCTION TEST ABNORMAL
     Route: 065

REACTIONS (6)
  - Restlessness [Unknown]
  - Vertigo [Unknown]
  - Asthma [Unknown]
  - Depressed mood [Unknown]
  - Dyspnoea [Unknown]
  - Mood altered [Unknown]
